FAERS Safety Report 5474214-6 (Version None)
Quarter: 2007Q4

REPORT INFORMATION
  Report Type: 
  Country: None (occurrence: None)
  Receive Date: 20071002
  Receipt Date: 20070620
  Transmission Date: 20080405
  Serious: No
  Sender: FDA-Public Use
  Company Number: US-ASTRAZENECA-2007UW13183

PATIENT
  Age: 64 Year
  Sex: Female
  Weight: 72.6 kg

DRUGS (10)
  1. ARIMIDEX [Suspect]
     Indication: BREAST CANCER
     Route: 048
     Dates: start: 20061001
  2. ARIMIDEX [Suspect]
     Indication: PROPHYLAXIS
     Route: 048
     Dates: start: 20061001
  3. AMBIEN [Concomitant]
  4. DIOVAN [Concomitant]
  5. XANAX [Concomitant]
  6. LIBRAX [Concomitant]
  7. PREVACID [Concomitant]
  8. CELEBREX [Concomitant]
  9. GLUCOSAMINE [Concomitant]
  10. ASPIRIN [Concomitant]

REACTIONS (9)
  - ADVERSE DRUG REACTION [None]
  - ARTHRALGIA [None]
  - BURNING SENSATION [None]
  - HOT FLUSH [None]
  - HYPOAESTHESIA [None]
  - INSOMNIA [None]
  - PAIN [None]
  - PARAESTHESIA [None]
  - WEIGHT INCREASED [None]
